FAERS Safety Report 25950133 (Version 1)
Quarter: 2025Q4

REPORT INFORMATION
  Report Type: Spontaneous
  Country: JP (occurrence: JP)
  Receive Date: 20251022
  Receipt Date: 20251022
  Transmission Date: 20260118
  Serious: Yes (Hospitalization)
  Sender: MERCK SHARP & DOHME LLC
  Company Number: JP-009507513-2341469

PATIENT
  Age: 75 Year
  Sex: Male

DRUGS (3)
  1. KEYTRUDA [Suspect]
     Active Substance: PEMBROLIZUMAB
     Indication: Bile duct cancer
     Route: 041
     Dates: start: 2025, end: 2025
  2. GEMCITABINE [Suspect]
     Active Substance: GEMCITABINE
     Indication: Bile duct cancer
     Dosage: 1000MG/M^2 TWICE EVERY 3 WEEKS
     Route: 041
  3. CISPLATIN [Suspect]
     Active Substance: CISPLATIN
     Indication: Bile duct cancer
     Dosage: 25MG/M^2 TWICE EVERY 3 WEEKS
     Route: 041
     Dates: start: 2025

REACTIONS (1)
  - Immune-mediated renal disorder [Recovering/Resolving]

NARRATIVE: CASE EVENT DATE: 20250901
